FAERS Safety Report 19729465 (Version 3)
Quarter: 2021Q4

REPORT INFORMATION
  Report Type: Report from Study
  Country: US (occurrence: US)
  Receive Date: 20210821
  Receipt Date: 20211019
  Transmission Date: 20220303
  Serious: No
  Sender: FDA-Public Use
  Company Number: NVSC2021US189396

PATIENT
  Age: 65 Year
  Sex: Male

DRUGS (2)
  1. ENTRESTO [Suspect]
     Active Substance: SACUBITRIL\VALSARTAN
     Indication: Cardiac failure
     Dosage: 0.5 DF (24/26 MG), BID
     Route: 048
     Dates: start: 20210802
  2. ENTRESTO [Suspect]
     Active Substance: SACUBITRIL\VALSARTAN
     Dosage: 1.5 DF, UNKOWN(NOW TAKING 1 TAB AM, 1/2 TAB PM AS PRESCRIBED)
     Route: 048

REACTIONS (4)
  - Off label use [Unknown]
  - Therapeutic product ineffective [Unknown]
  - Wrong technique in product usage process [Unknown]
  - Product dosage form confusion [Unknown]

NARRATIVE: CASE EVENT DATE: 20210802
